FAERS Safety Report 10048869 (Version 1)
Quarter: 2014Q1

REPORT INFORMATION
  Report Type: Spontaneous
  Country: US (occurrence: None)
  Receive Date: 20140327
  Receipt Date: 20140327
  Transmission Date: 20141002
  Serious: Yes (Hospitalization)
  Sender: FDA-Public Use
  Company Number: UTC-046145

PATIENT
  Age: 54 Year
  Sex: Female

DRUGS (1)
  1. REMODULIN (0.4 MILLIGRAM/MILLILITERS, INJECTION FOR INFUSION) (TREPROSTINIL SODIUM) [Suspect]
     Indication: PULMONARY ARTERIAL HYPERTENSION
     Dosage: 184.32 UG/KG (0.128 UG/KG, 1 IN 1 MIN), INTRAVENOUS DRIP
     Dates: start: 20110104

REACTIONS (2)
  - Post procedural haematoma [None]
  - Cardiac ablation [None]
